FAERS Safety Report 7625603-2 (Version None)
Quarter: 2011Q3

REPORT INFORMATION
  Report Type: 
  Country: None (occurrence: None)
  Receive Date: 20110713
  Receipt Date: 20110705
  Transmission Date: 20111222
  Serious: Yes (Other)
  Sender: FDA-Public Use
  Company Number: 2011SP011931

PATIENT
  Age: 47 Year
  Sex: Male

DRUGS (11)
  1. LISINOPRIL [Concomitant]
  2. LOVASTATIN [Concomitant]
  3. HEPATITS A VACCINE [Concomitant]
  4. TRAMADOL HCL [Concomitant]
  5. HYDROCHLOROTHIAZIDE [Concomitant]
  6. ASPIRIN [Concomitant]
  7. PEG-INTRON [Suspect]
     Indication: HEPATITIS C
     Dosage: 150 MCG;QW;SC
     Route: 058
     Dates: start: 20110304
  8. REBETOL [Suspect]
     Indication: HEPATITIS C
     Dosage: 150 MCG;QW;SC
     Route: 058
     Dates: start: 20110304
  9. ADVIL LIQUI-GELS [Concomitant]
  10. METFORMIN HCL [Concomitant]
  11. GLIPIZIDE [Concomitant]

REACTIONS (8)
  - DIARRHOEA [None]
  - CHILLS [None]
  - HAEMATOCHEZIA [None]
  - INJECTION SITE ERYTHEMA [None]
  - PAIN [None]
  - RASH [None]
  - HEADACHE [None]
  - INSOMNIA [None]
